FAERS Safety Report 23895746 (Version 2)
Quarter: 2024Q2

REPORT INFORMATION
  Report Type: Spontaneous
  Country: US (occurrence: US)
  Receive Date: 20240524
  Receipt Date: 20240529
  Transmission Date: 20240716
  Serious: No
  Sender: FDA-Public Use
  Company Number: US-PFIZER INC-202400173668

PATIENT
  Age: 4 Year
  Sex: Male
  Weight: 12.7 kg

DRUGS (5)
  1. GENOTROPIN [Suspect]
     Active Substance: SOMATROPIN
     Indication: Growth retardation
     Dosage: 0.5 MG, DAILY (ADMINISTERED IN THIGH AND BACK ARM)
     Dates: start: 20240506
  2. OXYBUTYNIN [Concomitant]
     Active Substance: OXYBUTYNIN\OXYBUTYNIN CHLORIDE
     Indication: Bladder disorder
     Dosage: 3 ML, 2X/DAY (THROUGH EXTENSION THROUGH FEEDING BUTTON)
  3. IRON [Concomitant]
     Active Substance: IRON
     Indication: Blood iron decreased
     Dosage: 2 ML, 1X/DAY (THROUGH EXTENSION THROUGH FEEDING BUTTON)
  4. FAMOTIDINE [Concomitant]
     Active Substance: FAMOTIDINE
     Indication: Aspiration
     Dosage: 1 ML, 2X/DAY (THROUGH EXTENSION THROUGH FEEDING BUTTON)
  5. LEVOTHYROXINE [Concomitant]
     Active Substance: LEVOTHYROXINE\LEVOTHYROXINE SODIUM
     Indication: Thyroid disorder
     Dosage: 125 UG, 1X/DAY (THROUGH EXTENSION THROUGH FEEDING BUTTON)

REACTIONS (5)
  - Device defective [Unknown]
  - Device mechanical issue [Unknown]
  - Device malfunction [Unknown]
  - Device leakage [Unknown]
  - Product dose omission issue [Unknown]

NARRATIVE: CASE EVENT DATE: 20240515
